FAERS Safety Report 4900899-6 (Version None)
Quarter: 2006Q1

REPORT INFORMATION
  Report Type: 
  Country: None (occurrence: None)
  Receive Date: 20060201
  Receipt Date: 20060119
  Transmission Date: 20060701
  Serious: Yes (Other)
  Sender: FDA-Public Use
  Company Number: GXKR2006DE00627

PATIENT
  Sex: Female

DRUGS (2)
  1. ATENOLOL [Suspect]
  2. CORTISONE ACETATE [Concomitant]

REACTIONS (5)
  - BLOOD PRESSURE INCREASED [None]
  - DRUG EFFECT DECREASED [None]
  - INADEQUATE ANALGESIA [None]
  - JOINT SWELLING [None]
  - MUSCULOSKELETAL PAIN [None]
